FAERS Safety Report 8817660 (Version 4)
Quarter: 2020Q3

REPORT INFORMATION
  Report Type: Report from Study
  Country: CA (occurrence: CA)
  Receive Date: 20121001
  Receipt Date: 20131025
  Transmission Date: 20201105
  Serious: Yes (Death, Other)
  Sender: FDA-Public Use
  Company Number: PHHY2012CA024101

PATIENT
  Age: 63 Year
  Sex: Male

DRUGS (6)
  1. ZOMETA [Suspect]
     Active Substance: ZOLEDRONIC ACID
     Indication: PROSTATE CANCER
     Dosage: 4 MG, ONCE A MONTH
     Route: 042
     Dates: start: 20120215
  2. ZOMETA [Suspect]
     Active Substance: ZOLEDRONIC ACID
     Dosage: 4 MG, EVERY 4 WEEKS
     Route: 042
  3. ZOMETA [Suspect]
     Active Substance: ZOLEDRONIC ACID
     Dosage: 4 MG, EVERY 4?6 WEEKS
     Route: 042
  4. CALCIUM CHANNEL BLOCKERS [Concomitant]
     Active Substance: UNSPECIFIED INGREDIENT
  5. ZOMETA [Suspect]
     Active Substance: ZOLEDRONIC ACID
     Dosage: 4 MG, EVERY 6 WEEKS
     Route: 042
  6. CEDIRANIB. [Suspect]
     Active Substance: CEDIRANIB
     Dosage: 1 DF, DAILY FOR ONE MONTH
     Route: 048
     Dates: start: 20120801

REACTIONS (8)
  - Pain [Unknown]
  - Therapy non-responder [Unknown]
  - Anaemia [Unknown]
  - Blood pressure increased [Unknown]
  - Pallor [Unknown]
  - Fatigue [Unknown]
  - Death [Fatal]
  - Heart rate irregular [Unknown]

NARRATIVE: CASE EVENT DATE: 20131007
